FAERS Safety Report 13001485 (Version 1)
Quarter: 2016Q4

REPORT INFORMATION
  Report Type: Spontaneous
  Country: US (occurrence: US)
  Receive Date: 20161203
  Receipt Date: 20161203
  Transmission Date: 20170207
  Serious: Yes (Hospitalization)
  Sender: FDA-Public Use
  Company Number: None

PATIENT
  Age: 11 Year
  Sex: Female
  Weight: 34 kg

DRUGS (7)
  1. DEXAMETHASONE. [Suspect]
     Active Substance: DEXAMETHASONE
     Dates: end: 20161124
  2. LOVENOX [Concomitant]
     Active Substance: ENOXAPARIN SODIUM
  3. CYTARABINE. [Suspect]
     Active Substance: CYTARABINE
     Route: 037
     Dates: end: 20161105
  4. ONCASPAR [Suspect]
     Active Substance: PEGASPARGASE
     Dates: end: 20161121
  5. ACYCLOVIR. [Concomitant]
     Active Substance: ACYCLOVIR
  6. DAUNORUBICIN [Suspect]
     Active Substance: DAUNORUBICIN
     Dates: end: 20161118
  7. VINCRISTINE SULFATE. [Suspect]
     Active Substance: VINCRISTINE SULFATE
     Dates: end: 20161118

REACTIONS (6)
  - Hypotension [None]
  - Pancreatitis [None]
  - Hypocalcaemia [None]
  - Urine output decreased [None]
  - Dialysis [None]
  - Renal disorder [None]

NARRATIVE: CASE EVENT DATE: 20161125
